FAERS Safety Report 8835995 (Version 1)
Quarter: 2012Q4

REPORT INFORMATION
  Report Type: 
  Country: US (occurrence: US)
  Receive Date: 20121011
  Receipt Date: 20121011
  Transmission Date: 20130627
  Serious: No
  Sender: FDA-Public Use
  Company Number: US-PFIZER INC-2012252197

PATIENT
  Age: 55 Year
  Sex: Female
  Weight: 86.17 kg

DRUGS (12)
  1. CHANTIX [Suspect]
     Indication: SMOKING CESSATION THERAPY
     Dosage: 0.5 mg, 1x/day
     Route: 048
     Dates: start: 201209, end: 2012
  2. CHANTIX [Suspect]
     Dosage: 1 mg, 2x/day
     Route: 048
     Dates: start: 2012, end: 20121010
  3. ASPIRIN [Concomitant]
     Dosage: 325 mg, 1x/day
  4. SOMA [Concomitant]
     Dosage: UNK
  5. ENDOCET [Concomitant]
     Dosage: UNK
  6. PLAVIX [Concomitant]
     Dosage: 75 mg, UNK
  7. LEXAPRO [Concomitant]
     Dosage: 20 mg, UNK
  8. NEURONTIN [Concomitant]
     Dosage: 800 mg, UNK
  9. LEVOTHROID [Concomitant]
     Dosage: 88 ug, UNK
  10. MOBIC [Concomitant]
     Dosage: 15 mg, UNK
  11. ZOCOR [Concomitant]
     Dosage: 40 mg, UNK
  12. DIOVAN HCT [Concomitant]
     Dosage: 160/12.5 mg, UNK

REACTIONS (3)
  - Nausea [Not Recovered/Not Resolved]
  - Abdominal distension [Not Recovered/Not Resolved]
  - Gastric disorder [Not Recovered/Not Resolved]
